FAERS Safety Report 15042168 (Version 1)
Quarter: 2018Q2

REPORT INFORMATION
  Report Type: Report from Study
  Country: CL (occurrence: CL)
  Receive Date: 20180621
  Receipt Date: 20180621
  Transmission Date: 20180711
  Serious: Yes (Other)
  Sender: FDA-Public Use
  Company Number: CL-BRISTOL-MYERS SQUIBB COMPANY-BMS-2018-020495

PATIENT
  Sex: Female

DRUGS (1)
  1. ABATACEPT [Suspect]
     Active Substance: ABATACEPT
     Indication: RHEUMATOID ARTHRITIS
     Dosage: 125 MG, QWK
     Route: 058
     Dates: start: 20161021, end: 201804

REACTIONS (6)
  - Blood pressure increased [Unknown]
  - Renal disorder [Recovering/Resolving]
  - Blood glucose fluctuation [Unknown]
  - Infection [Unknown]
  - Dizziness [Recovering/Resolving]
  - Visual impairment [Recovering/Resolving]
